FAERS Safety Report 14869738 (Version 1)
Quarter: 2018Q2

REPORT INFORMATION
  Report Type: Report from Study
  Country: CR (occurrence: CR)
  Receive Date: 20180509
  Receipt Date: 20180509
  Transmission Date: 20180711
  Serious: Yes (Other)
  Sender: FDA-Public Use
  Company Number: PHHY2016CR157209

PATIENT
  Age: 55 Year
  Sex: Female

DRUGS (2)
  1. BROMOCRIPTINE [Concomitant]
     Active Substance: BROMOCRIPTINE
     Indication: PRODUCT USED FOR UNKNOWN INDICATION
     Route: 065
  2. SANDOSTATIN LAR DEPOT [Suspect]
     Active Substance: OCTREOTIDE ACETATE
     Indication: PRODUCT USED FOR UNKNOWN INDICATION
     Route: 065

REACTIONS (8)
  - Limb injury [Unknown]
  - Fall [Unknown]
  - Joint injury [Unknown]
  - Weight increased [Unknown]
  - Varicose vein [Unknown]
  - Gait disturbance [Unknown]
  - Fracture [Unknown]
  - Pain in extremity [Unknown]
